FAERS Safety Report 26129113 (Version 2)
Quarter: 2025Q4

REPORT INFORMATION
  Report Type: Spontaneous
  Country: US (occurrence: US)
  Receive Date: 20251208
  Receipt Date: 20251218
  Transmission Date: 20260117
  Serious: No
  Sender: LUPIN
  Company Number: US-LUPIN PHARMACEUTICALS INC.-2025-10914

PATIENT
  Age: 23 Year
  Weight: 61.224 kg

DRUGS (1)
  1. XOPENEX HFA [Suspect]
     Active Substance: LEVALBUTEROL TARTRATE
     Indication: Cystic fibrosis
     Dosage: 2 PUFFS TWICE A DAY, EVERY 4 HOURS AS NEEDED

REACTIONS (4)
  - Lower respiratory tract congestion [Unknown]
  - Drug dose omission by device [Unknown]
  - Device delivery system issue [Unknown]
  - Off label use [Unknown]
